FAERS Safety Report 20322940 (Version 1)
Quarter: 2022Q1

REPORT INFORMATION
  Report Type: Spontaneous
  Country: NL (occurrence: NL)
  Receive Date: 20220111
  Receipt Date: 20220111
  Transmission Date: 20220423
  Serious: Yes (Other)
  Sender: FDA-Public Use
  Company Number: None

PATIENT
  Age: 53 Year
  Sex: Male
  Weight: 108 kg

DRUGS (8)
  1. ROSUVASTATIN [Suspect]
     Active Substance: ROSUVASTATIN
     Dosage: FIRST 2 MONTHS 1DD 40MG TABLET, THEN 1DD 20MG, THERAPY END DATE: ASKU,40 MG
     Dates: start: 20210713
  2. ROSUVASTATIN [Suspect]
     Active Substance: ROSUVASTATIN
     Dosage: 20 MILLIGRAM DAILY; THEN 1DD 20MG,THERAPY START DATE :ASKU, THERAPY END DATE: ASKU,20 MG
  3. METFORMIN HYDROCHLORIDE [Concomitant]
     Active Substance: METFORMIN HYDROCHLORIDE
     Dosage: THERAPY START DATE :ASKU, THERAPY END DATE: ASKU, 500 MG
  4. PERINDOPRIL [Concomitant]
     Active Substance: PERINDOPRIL
     Dosage: 4MG THERAPY START DATE :ASKU, THERAPY END DATE: ASKU
  5. OMEPRAZOLE [Concomitant]
     Active Substance: OMEPRAZOLE
     Dosage: 40 MG THERAPY START DATE :ASKU, THERAPY END DATE: ASKU
  6. ASPIRIN [Concomitant]
     Active Substance: ASPIRIN
     Dosage: 80 MG,THERAPY START DATE :ASKU, THERAPY END DATE: ASKU
  7. TICAGRELOR [Concomitant]
     Active Substance: TICAGRELOR
     Dosage: 60 MG  THERAPY START DATE :ASKU, THERAPY END DATE: ASKU
  8. METOPROLOL [Concomitant]
     Active Substance: METOPROLOL
     Dosage: THERAPY START DATE :ASKU, THERAPY END DATE: ASKU, 200 MG

REACTIONS (1)
  - Pancreatitis acute [Recovering/Resolving]

NARRATIVE: CASE EVENT DATE: 20211106
